FAERS Safety Report 24405593 (Version 1)
Quarter: 2024Q4

REPORT INFORMATION
  Report Type: Spontaneous
  Country: US (occurrence: US)
  Receive Date: 20241007
  Receipt Date: 20241007
  Transmission Date: 20250114
  Serious: Yes (Hospitalization)
  Sender: BAYER
  Company Number: US-BAYER-2024A140416

PATIENT
  Age: 68 Year
  Sex: Female

DRUGS (3)
  1. ALKA-SELTZER HEARTBURN [Suspect]
     Active Substance: ANHYDROUS CITRIC ACID\SODIUM BICARBONATE
     Dosage: 2 TABLETS
     Route: 048
     Dates: end: 20240929
  2. BAYER LOW DOSE [Suspect]
     Active Substance: ASPIRIN
  3. CLOPIDOGREL BISULFATE [Concomitant]
     Active Substance: CLOPIDOGREL BISULFATE

REACTIONS (2)
  - Gastrointestinal haemorrhage [Recovered/Resolved]
  - Haemoglobin decreased [Recovering/Resolving]

NARRATIVE: CASE EVENT DATE: 20240628
